FAERS Safety Report 24731900 (Version 2)
Quarter: 2024Q4

REPORT INFORMATION
  Report Type: Spontaneous
  Country: DE (occurrence: DE)
  Receive Date: 20241213
  Receipt Date: 20241218
  Transmission Date: 20250115
  Serious: Yes (Other)
  Sender: PFIZER
  Company Number: DE-ROCHE-10000148362

PATIENT
  Age: 4 Month
  Sex: Male

DRUGS (12)
  1. RITUXIMAB [Suspect]
     Active Substance: RITUXIMAB
     Indication: Pemphigoid
     Dosage: 375MG/M2 GIVEN TWICE WITHIN AN INTERVAL OF ONE WEEK
     Route: 065
  2. PREDNISOLONE [Concomitant]
     Active Substance: PREDNISOLONE
     Indication: Pemphigoid
     Dosage: 2MG/KG BW
     Route: 048
  3. PREDNISOLONE [Concomitant]
     Active Substance: PREDNISOLONE
     Dosage: 3.5MG/KG BW
     Route: 048
  4. PREDNISOLONE [Concomitant]
     Active Substance: PREDNISOLONE
     Dosage: 2MG/KG BW
     Route: 048
  5. DAPSONE [Concomitant]
     Active Substance: DAPSONE
     Indication: Pemphigoid
     Dosage: 1MG/KG BW
  6. DAPSONE [Concomitant]
     Active Substance: DAPSONE
     Dosage: 2MG/KG BW
  7. HUMAN IMMUNOGLOBULIN G [Concomitant]
     Active Substance: HUMAN IMMUNOGLOBULIN G
     Indication: Pemphigoid
     Dosage: 2 G/KG BW
     Route: 042
  8. HUMAN IMMUNOGLOBULIN G [Concomitant]
     Active Substance: HUMAN IMMUNOGLOBULIN G
     Dosage: SECOND CYCLE WAS ADMINISTERED 3 WEEKS AFTER THE SECOND DOSE OF RITUXIMAB
  9. HUMAN IMMUNOGLOBULIN G [Concomitant]
     Active Substance: HUMAN IMMUNOGLOBULIN G
     Dosage: 3RD DOSE FOUR WEEKS AFTER THE SECOND IVIG TREATMENT
  10. MOMETASONE FUROATE [Concomitant]
     Active Substance: MOMETASONE FUROATE
     Indication: Pemphigoid
     Dosage: UNK, 2X/DAY
     Route: 061
  11. METHYLPREDNISOLONE [Concomitant]
     Active Substance: METHYLPREDNISOLONE
     Indication: Pemphigoid
     Dosage: 10 MG/KG BW FOR 3 CONSECUTIVE DAYS
     Route: 042
  12. HYDROCORTISONE [Concomitant]
     Active Substance: HYDROCORTISONE
     Indication: Pemphigoid
     Dosage: UNK

REACTIONS (4)
  - B-lymphocyte count decreased [Recovered/Resolved]
  - Hypogammaglobulinaemia [Recovered/Resolved]
  - Off label use [Unknown]
  - Product prescribing issue [Unknown]
